FAERS Safety Report 5322306-4 (Version None)
Quarter: 2007Q2

REPORT INFORMATION
  Report Type: 
  Country: None (occurrence: None)
  Receive Date: 20070511
  Receipt Date: 20070504
  Transmission Date: 20071010
  Serious: Yes (Hospitalization)
  Sender: FDA-Public Use
  Company Number: B0470111A

PATIENT
  Sex: Female
  Weight: 48 kg

DRUGS (10)
  1. QUILONORM RETARD [Suspect]
     Indication: DEPRESSION
     Route: 048
     Dates: start: 20070422
  2. RISPERDAL [Suspect]
     Indication: DEPRESSION
     Route: 048
     Dates: start: 20070402, end: 20070426
  3. CIPRALEX [Suspect]
     Indication: DRUG USE FOR UNKNOWN INDICATION
     Route: 048
     Dates: end: 20070429
  4. ARICEPT [Suspect]
     Indication: DRUG USE FOR UNKNOWN INDICATION
     Route: 048
     Dates: start: 20070412
  5. ABILIFY [Concomitant]
     Dosage: 5MG PER DAY
     Route: 048
     Dates: start: 20070424
  6. CYMBALTA [Concomitant]
     Route: 048
     Dates: start: 20070426
  7. EDRONAX [Concomitant]
     Route: 048
     Dates: end: 20070403
  8. RIVOTRIL [Concomitant]
     Route: 048
     Dates: start: 20070330
  9. CEREBROLYSIN [Concomitant]
     Dosage: 1AMP PER DAY
     Route: 042
     Dates: start: 20070327, end: 20070405
  10. NEXIUM [Concomitant]
     Dosage: 20MG PER DAY
     Route: 048
     Dates: start: 20070326

REACTIONS (2)
  - EXTRAPYRAMIDAL DISORDER [None]
  - MOBILITY DECREASED [None]
